FAERS Safety Report 8056568-X (Version None)
Quarter: 2012Q1

REPORT INFORMATION
  Report Type: 
  Country: None (occurrence: None)
  Receive Date: 20120119
  Receipt Date: 20110519
  Transmission Date: 20120608
  Serious: Yes (Hospitalization)
  Sender: FDA-Public Use
  Company Number: PHHY2011GB46152

PATIENT
  Age: 5 Year
  Sex: Male

DRUGS (12)
  1. LAMOTRIGINE [Suspect]
     Indication: GRAND MAL CONVULSION
  2. DIAZEPAM [Concomitant]
     Indication: GRAND MAL CONVULSION
  3. CEFOTAXIME [Concomitant]
     Indication: GRAND MAL CONVULSION
     Dosage: UNK UKN, UNK
  4. THIOPENTAL SODIUM [Concomitant]
     Indication: GRAND MAL CONVULSION
  5. PHENYTOIN [Concomitant]
     Indication: GRAND MAL CONVULSION
     Dosage: UNK UKN, UNK
  6. CLONAZEPAM [Concomitant]
     Indication: GRAND MAL CONVULSION
     Dosage: UNK UKN, UNK
  7. PARALDEHYDE [Concomitant]
     Indication: GRAND MAL CONVULSION
     Dosage: UNK UKN, UNK
  8. GENTAMICIN [Concomitant]
     Indication: GRAND MAL CONVULSION
     Dosage: UNK UKN, UNK
  9. ERYTHROMYCIN [Concomitant]
     Indication: GRAND MAL CONVULSION
     Dosage: UNK UKN, UNK
  10. CLOBAZAM [Suspect]
     Indication: GRAND MAL CONVULSION
  11. VALPROATE SODIUM [Suspect]
     Indication: GRAND MAL CONVULSION
     Dosage: UNK UKN, UNK
  12. PIPERACILLIN AND TAZOBACTAM [Concomitant]
     Indication: GRAND MAL CONVULSION
     Dosage: UNK UKN, UNK

REACTIONS (9)
  - FEBRILE CONVULSION [None]
  - HYPOXIA [None]
  - ENCEPHALOPATHY [None]
  - APHASIA [None]
  - DYSTONIA [None]
  - PNEUMONIA MYCOPLASMAL [None]
  - CEREBRAL ATROPHY [None]
  - ATONIC SEIZURES [None]
  - BRAIN OEDEMA [None]
